FAERS Safety Report 22289972 (Version 1)
Quarter: 2023Q2

REPORT INFORMATION
  Report Type: Spontaneous
  Country: US (occurrence: US)
  Receive Date: 20230505
  Receipt Date: 20230505
  Transmission Date: 20230722
  Serious: Yes (Other)
  Sender: FDA-Public Use
  Company Number: US-TEVA-2020-US-1805418

PATIENT
  Age: 66 Year
  Sex: Female
  Weight: 108.8 kg

DRUGS (29)
  1. HYDROCHLOROTHIAZIDE\VALSARTAN [Suspect]
     Active Substance: HYDROCHLOROTHIAZIDE\VALSARTAN
     Indication: Hypertension
     Dosage: VALSARTAN 160 MG/ HYDROCHLOROTHIAZIDE 25 MG
     Route: 065
     Dates: start: 20140202, end: 20141211
  2. HYDROCHLOROTHIAZIDE\VALSARTAN [Suspect]
     Active Substance: HYDROCHLOROTHIAZIDE\VALSARTAN
     Dosage: VALSARTAN 160 MG/ HYDROCHLOROTHIAZIDE 25 MG
     Route: 065
     Dates: start: 20141223, end: 20160115
  3. DIOVAN HCT [Suspect]
     Active Substance: HYDROCHLOROTHIAZIDE\VALSARTAN
     Indication: Product used for unknown indication
     Dosage: VALSARTAN 160 MG AND HYDROCHLOROTHIAZIDE 25 MG
     Route: 048
  4. DIOVAN [Suspect]
     Active Substance: VALSARTAN
     Indication: Hypertension
     Route: 065
     Dates: start: 20120324, end: 20120910
  5. DIOVAN [Suspect]
     Active Substance: VALSARTAN
     Route: 065
     Dates: start: 20120828, end: 20130731
  6. HYDROCHLOROTHIAZIDE\VALSARTAN [Suspect]
     Active Substance: HYDROCHLOROTHIAZIDE\VALSARTAN
     Indication: Hypertension
     Dosage: VALSARTAN 160 MG, HYDROCHLOROTHIAZIDE 25 MG
     Route: 065
     Dates: start: 20160116, end: 20160415
  7. HYDROCHLOROTHIAZIDE\VALSARTAN [Suspect]
     Active Substance: HYDROCHLOROTHIAZIDE\VALSARTAN
     Indication: Hypertension
     Dosage: VALSARTAN 160 MG, HYDROCHLOROTHIAZIDE 25 MG
     Route: 065
     Dates: start: 20131030, end: 20140128
  8. CANDESARTAN [Suspect]
     Active Substance: CANDESARTAN
     Indication: Hypertension
     Route: 065
     Dates: start: 20160411, end: 20160511
  9. CANDESARTAN [Suspect]
     Active Substance: CANDESARTAN
     Route: 065
     Dates: start: 20160623, end: 20160713
  10. CANDESARTAN [Suspect]
     Active Substance: CANDESARTAN
     Route: 065
     Dates: start: 20160711, end: 20160909
  11. CANDESARTAN [Suspect]
     Active Substance: CANDESARTAN
     Route: 065
     Dates: start: 20161104, end: 20170713
  12. CANDESARTAN [Suspect]
     Active Substance: CANDESARTAN
     Indication: Hypertension
     Route: 065
     Dates: start: 20160504, end: 20160603
  13. CANDESARTAN [Suspect]
     Active Substance: CANDESARTAN
     Route: 065
     Dates: start: 20160829, end: 20161104
  14. LOSARTAN [Suspect]
     Active Substance: LOSARTAN
     Indication: Product used for unknown indication
     Route: 065
  15. LOSARTAN [Suspect]
     Active Substance: LOSARTAN
     Indication: Product used for unknown indication
     Route: 065
  16. ALBUTEROL [Concomitant]
     Active Substance: ALBUTEROL
     Indication: Asthma
     Dosage: ACTUATION INHALER, INHALE 2 INHALATIONS INTO THE LUNGS EVERY 6 HOURS AS NEEDED
     Route: 065
     Dates: start: 2010
  17. VENTOLIN HFA [Concomitant]
     Active Substance: ALBUTEROL SULFATE
     Indication: Wheezing
     Dosage: ACTUATION INHALER, INHALE 2 INHALATIONS INTO THE LUNGS EVERY 6 HOURS AS NEEDED
     Route: 065
  18. VENTOLIN HFA [Concomitant]
     Active Substance: ALBUTEROL SULFATE
     Indication: Dyspnoea
  19. GARLIC [Concomitant]
     Active Substance: GARLIC
     Indication: Cardiac disorder
     Route: 048
     Dates: start: 2010
  20. CEFTIN [Concomitant]
     Active Substance: CEFUROXIME AXETIL
     Indication: Product used for unknown indication
     Route: 048
  21. DRISDOL [Concomitant]
     Active Substance: ERGOCALCIFEROL
     Indication: Product used for unknown indication
     Dosage: 50000 UNITS, 1 CAP BY MOUTH WEEKLY
     Route: 048
  22. CODEINE-GUAIFENESIN [Concomitant]
     Active Substance: CODEINE PHOSPHATE\GUAIFENESIN
     Indication: Cough
     Dosage: CODEINE 10 MG, GUAIFENESIN 100 MG/5 ML EVERY 6 HOURS AS NEEDED
     Route: 048
  23. ATACAND [Concomitant]
     Active Substance: CANDESARTAN CILEXETIL
     Indication: Product used for unknown indication
     Dosage: 8 MILLIGRAM DAILY;
     Route: 048
  24. LASIX [Concomitant]
     Active Substance: FUROSEMIDE
     Indication: Product used for unknown indication
     Dosage: 20 MILLIGRAM DAILY;
     Route: 048
  25. EMLA [Concomitant]
     Active Substance: LIDOCAINE\PRILOCAINE
     Indication: Product used for unknown indication
     Dosage: PRIOR TO PORTACATH USE
     Route: 061
  26. TOPROL XL [Concomitant]
     Active Substance: METOPROLOL SUCCINATE
     Indication: Product used for unknown indication
     Dosage: 75 MILLIGRAM DAILY;
     Route: 048
  27. PROTONIX [Concomitant]
     Active Substance: PANTOPRAZOLE SODIUM
     Indication: Product used for unknown indication
     Dosage: 80 MILLIGRAM DAILY;
     Route: 048
  28. K-DUR [Concomitant]
     Active Substance: POTASSIUM CHLORIDE
     Indication: Product used for unknown indication
     Dosage: 20 MILLIEQUIVALENTS DAILY;
     Route: 048
  29. KLOR-CON [Concomitant]
     Active Substance: POTASSIUM CHLORIDE
     Indication: Product used for unknown indication
     Dosage: 20 MILLIEQUIVALENTS DAILY;
     Route: 048

REACTIONS (2)
  - Nodular lymphocyte predominant Hodgkin lymphoma [Unknown]
  - Diffuse large B-cell lymphoma [Unknown]
